FAERS Safety Report 9685206 (Version 1)
Quarter: 2013Q4

REPORT INFORMATION
  Report Type: Spontaneous
  Country: US (occurrence: None)
  Receive Date: 20131112
  Receipt Date: 20131112
  Transmission Date: 20140711
  Serious: Yes (Disabling, Congenital Anomaly, Other)
  Sender: FDA-Public Use
  Company Number: None

PATIENT
  Age: 5 Year
  Sex: Female

DRUGS (2)
  1. REGLAN (METOCLOPRAMIDE) [Suspect]
     Indication: PREGNANCY
     Route: 048
     Dates: start: 20020406, end: 20020515
  2. REGLAN (METOCLOPRAMIDE) [Suspect]
     Indication: NAUSEA
     Route: 048
     Dates: start: 20020406, end: 20020515

REACTIONS (2)
  - Maternal drugs affecting foetus [None]
  - Tardive dyskinesia [None]
